FAERS Safety Report 10543936 (Version 1)
Quarter: 2014Q4

REPORT INFORMATION
  Report Type: Spontaneous
  Country: CA (occurrence: None)
  Receive Date: 20141024
  Receipt Date: 20141024
  Transmission Date: 20150529
  Serious: Yes (Hospitalization)
  Sender: FDA-Public Use
  Company Number: None

PATIENT
  Age: 10 Year
  Sex: Female
  Weight: 42 kg

DRUGS (6)
  1. METHOTREXATE [Suspect]
     Active Substance: METHOTREXATE
     Dates: end: 20141016
  2. CYTARABINE. [Suspect]
     Active Substance: CYTARABINE
     Dates: end: 20140918
  3. ONCASPAR [Suspect]
     Active Substance: PEGASPARGASE
     Dates: end: 20140922
  4. PREDNISONE. [Suspect]
     Active Substance: PREDNISONE
     Dates: end: 20141016
  5. DAUNORUBICIN [Suspect]
     Active Substance: DAUNORUBICIN
     Dates: end: 20141009
  6. VINCRISTINE SULFATE. [Suspect]
     Active Substance: VINCRISTINE SULFATE
     Dates: end: 20141002

REACTIONS (9)
  - Blood culture positive [None]
  - Colitis [None]
  - Supraventricular tachycardia [None]
  - Hyperglycaemia [None]
  - Enterobacter test positive [None]
  - Posterior reversible encephalopathy syndrome [None]
  - Serratia test positive [None]
  - Large intestinal haemorrhage [None]
  - Febrile neutropenia [None]

NARRATIVE: CASE EVENT DATE: 20141006
